FAERS Safety Report 23820503 (Version 2)
Quarter: 2024Q2

REPORT INFORMATION
  Report Type: Spontaneous
  Country: US (occurrence: US)
  Receive Date: 20240506
  Receipt Date: 20240614
  Transmission Date: 20240716
  Serious: No
  Sender: FDA-Public Use
  Company Number: US-JNJFOC-20240476628

PATIENT
  Age: 8 Decade
  Sex: Female

DRUGS (1)
  1. TYLENOL 8 HR ARTHRITIS PAIN [Suspect]
     Active Substance: ACETAMINOPHEN
     Indication: Arthralgia
     Dosage: PRODUCT START DATE: APPROX. 2022. 2 TABLET
     Route: 048
     Dates: start: 2022

REACTIONS (2)
  - Inappropriate schedule of product administration [Unknown]
  - Product size issue [Unknown]

NARRATIVE: CASE EVENT DATE: 20220101
